FAERS Safety Report 26140948 (Version 1)
Quarter: 2025Q4

REPORT INFORMATION
  Report Type: Spontaneous
  Country: GB (occurrence: GB)
  Receive Date: 20251210
  Receipt Date: 20251210
  Transmission Date: 20260117
  Serious: Yes (Hospitalization, Other)
  Sender: NOVO NORDISK
  Company Number: None

PATIENT
  Age: 86 Year
  Sex: Female

DRUGS (7)
  1. METFORMIN [Concomitant]
     Active Substance: METFORMIN HYDROCHLORIDE
     Dosage: 500 MG, BID(ONE TABLET, WITH MEALS,56 TABLET)
     Dates: start: 20250910
  2. OZEMPIC [Suspect]
     Active Substance: SEMAGLUTIDE
     Indication: Product used for unknown indication
     Dosage: UNK
  3. ASPIRIN [Concomitant]
     Active Substance: ASPIRIN
     Dosage: 75 MG, QD(28 TABLET)
     Dates: start: 20250910
  4. ENSURE [Concomitant]
     Active Substance: AMINO ACIDS\DEXTROSE\ELECTROLYTES NOS\SOYBEAN OIL\VITAMINS
     Dosage: 1 TO BE TAKEN 3 TIMES A DAY,84 X 200 ML,HAVING 4 TIMES A DAY (QDS) AT HOME
     Dates: start: 20250910
  5. HYDROXYUREA [Concomitant]
     Active Substance: HYDROXYUREA
     Dosage: 500MG CAPSULES, AS PER HOSPITAL,0.1 CAPSULE
     Dates: start: 20250227
  6. LISINOPRIL [Concomitant]
     Active Substance: LISINOPRIL
     Dosage: 5 MG, QD(28 TABLET)
     Dates: start: 20250919
  7. ARANESP [Concomitant]
     Active Substance: DARBEPOETIN ALFA
     Dosage: 150MICROGRAMS/0.3ML SOLUTION - EVERY 3 WEEKS,NEXT DOSE EXPECTED WEDNESDAY THIS WEEK
     Dates: start: 20250625

REACTIONS (2)
  - Hyponatraemia [Unknown]
  - Diarrhoea [Unknown]
